FAERS Safety Report 5741020-4 (Version None)
Quarter: 2008Q2

REPORT INFORMATION
  Report Type: 
  Country: None (occurrence: None)
  Receive Date: 20080516
  Receipt Date: 20080507
  Transmission Date: 20081010
  Serious: Yes (Other)
  Sender: FDA-Public Use
  Company Number: US-ABBOTT-08P-163-0451283-00

PATIENT
  Sex: Female
  Weight: 77.18 kg

DRUGS (12)
  1. HUMIRA [Suspect]
     Indication: RHEUMATOID ARTHRITIS
     Route: 058
     Dates: start: 20070201, end: 20080409
  2. HUMIRA [Suspect]
     Dosage: INTERRUPTED THERAPY 9 APR 08-14 MAY 08, SURGERY
     Route: 058
     Dates: start: 20080514
  3. HUMIRA 20 MG/0.4 ML PRE-FILLED SYRINGE [Suspect]
     Indication: RHEUMATOID ARTHRITIS
     Dates: start: 20050801, end: 20070201
  4. METHOTREXATE [Concomitant]
     Indication: RHEUMATOID ARTHRITIS
     Route: 048
     Dates: start: 20041201
  5. ARTHROTEC [Concomitant]
     Indication: OSTEOARTHRITIS
     Route: 048
     Dates: start: 20041001
  6. PREDNISONE TAB [Concomitant]
     Indication: RHEUMATOID ARTHRITIS
     Route: 048
     Dates: start: 20050501
  7. PREDNISONE TAB [Concomitant]
     Route: 048
  8. CARISOPRODOL [Concomitant]
     Indication: MUSCLE RELAXANT THERAPY
     Dosage: ONE AT BEDTIME
     Route: 048
     Dates: start: 20050601
  9. CARISOPRODOL [Concomitant]
     Indication: RHEUMATOID ARTHRITIS
  10. NORTRIPTYLINE HCL [Concomitant]
     Indication: DEPRESSION
     Dosage: AT BEDTIME
     Route: 048
     Dates: start: 20050601
  11. CETIRIZINE HCL [Concomitant]
     Indication: SEASONAL ALLERGY
     Route: 048
     Dates: start: 20080301
  12. ESOMEPRAZOLE MAGNESIUM [Concomitant]
     Indication: GASTROOESOPHAGEAL REFLUX DISEASE
     Route: 048
     Dates: start: 20080301

REACTIONS (7)
  - AXILLARY MASS [None]
  - DYSPHONIA [None]
  - LOCAL SWELLING [None]
  - MUSCULOSKELETAL STIFFNESS [None]
  - PARANASAL SINUS HYPERSECRETION [None]
  - RHEUMATOID NODULE [None]
  - VOCAL CORD THICKENING [None]
